FAERS Safety Report 19001347 (Version 1)
Quarter: 2021Q1

REPORT INFORMATION
  Report Type: Spontaneous
  Country: US (occurrence: US)
  Receive Date: 20210311
  Receipt Date: 20210311
  Transmission Date: 20210420
  Serious: Yes (Hospitalization, Other)
  Sender: FDA-Public Use
  Company Number: US-BEH-2021129142

PATIENT
  Age: 57 Year
  Sex: Female

DRUGS (6)
  1. ZEMAIRA [Suspect]
     Active Substance: .ALPHA.1-PROTEINASE INHIBITOR HUMAN
     Indication: ALPHA-1 ANTITRYPSIN DEFICIENCY
     Route: 065
  2. TYLENOL [Concomitant]
     Active Substance: ACETAMINOPHEN
     Indication: PREMEDICATION
     Route: 065
  3. PREDNISONE. [Concomitant]
     Active Substance: PREDNISONE
     Indication: PREMEDICATION
  4. PREDNISONE. [Concomitant]
     Active Substance: PREDNISONE
     Indication: PREMEDICATION
     Route: 065
  5. PREDNISONE. [Concomitant]
     Active Substance: PREDNISONE
     Indication: PREMEDICATION
  6. ZEMAIRA [Suspect]
     Active Substance: .ALPHA.1-PROTEINASE INHIBITOR HUMAN
     Indication: ALPHA-1 ANTITRYPSIN DEFICIENCY
     Route: 065

REACTIONS (35)
  - Feeling cold [Recovered/Resolved]
  - Nausea [Unknown]
  - Night sweats [Unknown]
  - Abnormal loss of weight [Unknown]
  - Bronchitis [Unknown]
  - Lip exfoliation [Unknown]
  - Product administration interrupted [Unknown]
  - Furuncle [Unknown]
  - Hypersomnia [Unknown]
  - Gallbladder disorder [Unknown]
  - Chills [Recovered/Resolved]
  - Nausea [Recovered/Resolved]
  - Back pain [Unknown]
  - Pyrexia [Unknown]
  - Vomiting [Unknown]
  - Renal failure [Unknown]
  - Cholelithiasis [Unknown]
  - Cushingoid [Unknown]
  - Swelling face [Unknown]
  - Dyspnoea [Recovered/Resolved]
  - Hypersomnia [Unknown]
  - Incoherent [Unknown]
  - Catheter site infection [Unknown]
  - Back pain [Unknown]
  - Hepatic failure [Unknown]
  - Diarrhoea [Recovered/Resolved]
  - Nasopharyngitis [Unknown]
  - No adverse event [Unknown]
  - Loss of personal independence in daily activities [Unknown]
  - Pain [Unknown]
  - Nausea [Unknown]
  - Pyrexia [Unknown]
  - Lung disorder [Unknown]
  - Jaundice [Unknown]
  - Decreased appetite [Unknown]

NARRATIVE: CASE EVENT DATE: 20170906
